FAERS Safety Report 5486312-1 (Version None)
Quarter: 2007Q4

REPORT INFORMATION
  Report Type: 
  Country: None (occurrence: None)
  Receive Date: 20071016
  Receipt Date: 20071009
  Transmission Date: 20080405
  Serious: Yes (Other)
  Sender: FDA-Public Use
  Company Number: PHEH2007US13392

PATIENT
  Sex: Female
  Weight: 104.31 kg

DRUGS (1)
  1. COMBIPATCH [Suspect]
     Route: 062

REACTIONS (4)
  - BIOPSY [None]
  - HOT FLUSH [None]
  - LIP AND/OR ORAL CAVITY CANCER [None]
  - ROSACEA [None]
